FAERS Safety Report 13082756 (Version 1)
Quarter: 2017Q1

REPORT INFORMATION
  Report Type: Spontaneous
  Country: IN (occurrence: IN)
  Receive Date: 20170103
  Receipt Date: 20170103
  Transmission Date: 20170428
  Serious: Yes (Hospitalization)
  Sender: FDA-Public Use
  Company Number: IN-IMPAX LABORATORIES, INC-2016-IPXL-02473

PATIENT
  Age: 75 Year
  Sex: Male

DRUGS (2)
  1. CARBIDOPA-LEVODOPA ODT [Suspect]
     Active Substance: CARBIDOPA\LEVODOPA
     Indication: PARKINSON^S DISEASE
     Dosage: 10/100 MG, 3 /DAY
     Route: 065
  2. CARBIDOPA-LEVODOPA ODT [Suspect]
     Active Substance: CARBIDOPA\LEVODOPA
     Dosage: UNK; LOW DOSE
     Route: 065

REACTIONS (7)
  - Hashimoto^s encephalopathy [Recovering/Resolving]
  - Meningitis cryptococcal [Recovering/Resolving]
  - Urinary tract infection [Unknown]
  - Acute kidney injury [Unknown]
  - Decubitus ulcer [Recovering/Resolving]
  - Uraemic encephalopathy [Recovering/Resolving]
  - Substance-induced psychotic disorder [Recovering/Resolving]
